FAERS Safety Report 12962168 (Version 1)
Quarter: 2016Q4

REPORT INFORMATION
  Report Type: Spontaneous
  Country: US (occurrence: US)
  Receive Date: 20161121
  Receipt Date: 20161121
  Transmission Date: 20170207
  Serious: Yes (Life-Threatening, Hospitalization)
  Sender: FDA-Public Use
  Company Number: US-ELI_LILLY_AND_COMPANY-US201611007541

PATIENT
  Age: 64 Year
  Sex: Female
  Weight: 100 kg

DRUGS (1)
  1. TRULICITY [Suspect]
     Active Substance: DULAGLUTIDE
     Indication: BLOOD GLUCOSE ABNORMAL
     Dosage: 1.5 MG, WEEKLY (1/W)
     Route: 065
     Dates: start: 20160616, end: 20160707

REACTIONS (15)
  - Hyponatraemia [Unknown]
  - Hypokalaemia [Unknown]
  - Asthenia [Unknown]
  - Diarrhoea [Not Recovered/Not Resolved]
  - Acute kidney injury [Unknown]
  - Hypotension [Unknown]
  - Fall [Unknown]
  - Troponin increased [Unknown]
  - Abdominal pain [Not Recovered/Not Resolved]
  - Hypothermia [Unknown]
  - Dizziness [Unknown]
  - Bradycardia [Not Recovered/Not Resolved]
  - Leukocytosis [Unknown]
  - Blood sodium increased [Unknown]
  - Nausea [Not Recovered/Not Resolved]
